FAERS Safety Report 5147042-9 (Version None)
Quarter: 2006Q4

REPORT INFORMATION
  Report Type: 
  Country: None (occurrence: None)
  Receive Date: 20061103
  Receipt Date: 20061013
  Transmission Date: 20070319
  Serious: Yes (Other)
  Sender: FDA-Public Use
  Company Number: 2006132209

PATIENT
  Sex: Male

DRUGS (7)
  1. VIAGRA [Suspect]
     Indication: ERECTILE DYSFUNCTION
     Dosage: (100 MG), ORAL
     Route: 048
     Dates: start: 20000101
  2. COZAAR [Concomitant]
  3. ALFACALCIDOL (ALFACALCIDOL) [Concomitant]
  4. NEXIUM [Concomitant]
  5. SIMVASTATIN [Concomitant]
  6. ASPIRIN [Concomitant]
  7. CARVEDILOL [Concomitant]

REACTIONS (3)
  - DRUG INEFFECTIVE [None]
  - MULTI-ORGAN FAILURE [None]
  - PERITONITIS [None]
